FAERS Safety Report 10243427 (Version 1)
Quarter: 2014Q2

REPORT INFORMATION
  Report Type: Spontaneous
  Country: US (occurrence: None)
  Receive Date: 20140616
  Receipt Date: 20140616
  Transmission Date: 20141212
  Serious: No
  Sender: FDA-Public Use
  Company Number: None

PATIENT
  Age: 77 Year
  Sex: Male
  Weight: 100.5 kg

DRUGS (2)
  1. CARBOPLATIN [Suspect]
     Indication: THERAPY CHANGE
     Dates: end: 20140402
  2. PACLITAXEL(TAXOL) [Suspect]
     Dosage: ONCE PATIENT RE-STARTS TREATMENT, HE WILL RECIEVE A DOSE LEVEL 1 REDUCTION PER PROTOCOL
     Dates: end: 20140402

REACTIONS (13)
  - Neutropenia [None]
  - White blood cell count decreased [None]
  - Loss of consciousness [None]
  - Malaise [None]
  - Confusional state [None]
  - Hypotension [None]
  - Heart rate decreased [None]
  - Atrial fibrillation [None]
  - Septic shock [None]
  - Hypovolaemia [None]
  - Renal failure acute [None]
  - Faecal vomiting [None]
  - Skin odour abnormal [None]
